FAERS Safety Report 6616610-7 (Version None)
Quarter: 2010Q1

REPORT INFORMATION
  Report Type: 
  Country: None (occurrence: None)
  Receive Date: 20100305
  Receipt Date: 20100223
  Transmission Date: 20100710
  Serious: Yes (Hospitalization)
  Sender: FDA-Public Use
  Company Number: DE-PFIZER INC-2010027073

PATIENT
  Sex: Female

DRUGS (7)
  1. DOXAZOSIN MESILATE [Suspect]
     Dosage: 4 MG, UNK
     Dates: start: 20090901
  2. BELOC ZOK [Concomitant]
     Dosage: 95 MG, 2X/DAY
  3. INSULIN [Concomitant]
  4. DELIX [Concomitant]
     Dosage: 5 MG, 2X/DAY
  5. PLAVIX [Concomitant]
  6. EZETIMIBE/SIMVASTATIN [Concomitant]
  7. DYTIDE [Concomitant]

REACTIONS (1)
  - PNEUMONIA [None]
